FAERS Safety Report 4538552-3 (Version None)
Quarter: 2004Q4

REPORT INFORMATION
  Report Type: 
  Country: None (occurrence: None)
  Receive Date: 20041222
  Receipt Date: 20041207
  Transmission Date: 20050328
  Serious: Yes (Hospitalization, Other)
  Sender: FDA-Public Use
  Company Number: BEI-004926

PATIENT
  Age: 68 Year
  Sex: Male

DRUGS (1)
  1. PROHANCE [Suspect]
     Indication: NUCLEAR MAGNETIC RESONANCE IMAGING
     Dosage: 13 ML IV
     Route: 042
     Dates: start: 20041126, end: 20041126

REACTIONS (10)
  - ANAPHYLACTIC SHOCK [None]
  - ARTERIOSPASM CORONARY [None]
  - BRADYCARDIA [None]
  - CORNEAL REFLEX DECREASED [None]
  - ELECTROCARDIOGRAM ST SEGMENT ELEVATION [None]
  - FLUSHING [None]
  - HYPOAESTHESIA [None]
  - MYOCARDIAL ISCHAEMIA [None]
  - NAUSEA [None]
  - PULSE ABSENT [None]
